FAERS Safety Report 4587806-3 (Version None)
Quarter: 2005Q1

REPORT INFORMATION
  Report Type: 
  Country: None (occurrence: None)
  Receive Date: 20050125
  Receipt Date: 20041005
  Transmission Date: 20050727
  Serious: No
  Sender: FDA-Public Use
  Company Number: USA040977270

PATIENT
  Age: 80 Year
  Sex: Female
  Weight: 59 kg

DRUGS (8)
  1. FORTEO [Suspect]
     Indication: OSTEOPOROSIS
     Dosage: 20 UG/ 1 DAY
     Dates: start: 20040201
  2. COREG [Concomitant]
  3. BENICAR [Concomitant]
  4. CALCIUM WITH VITAMIN D [Concomitant]
  5. PREDNISONE [Concomitant]
  6. LEVOXYL [Concomitant]
  7. ALLOPURINOL [Concomitant]
  8. RESTORIL [Concomitant]

REACTIONS (3)
  - ASTHMA [None]
  - FALL [None]
  - HUMERUS FRACTURE [None]
